FAERS Safety Report 18687034 (Version 13)
Quarter: 2025Q3

REPORT INFORMATION
  Report Type: Report from Study
  Country: US (occurrence: US)
  Receive Date: 20201231
  Receipt Date: 20250702
  Transmission Date: 20251021
  Serious: Yes (Hospitalization, Other)
  Sender: TAKEDA
  Company Number: US-TAKEDA-2020TUS059925

PATIENT
  Age: 53 Year
  Sex: Female
  Weight: 88 kg

DRUGS (36)
  1. HUMAN IMMUNOGLOBULIN G [Suspect]
     Active Substance: HUMAN IMMUNOGLOBULIN G
     Indication: Immunodeficiency common variable
     Dosage: 6 GRAM, 1/WEEK
     Dates: start: 20200613
  2. HUMAN IMMUNOGLOBULIN G [Suspect]
     Active Substance: HUMAN IMMUNOGLOBULIN G
     Dosage: 4 GRAM, 1/WEEK
  3. HUMAN IMMUNOGLOBULIN G [Suspect]
     Active Substance: HUMAN IMMUNOGLOBULIN G
     Dosage: 8 GRAM, 1/WEEK
  4. HUMAN IMMUNOGLOBULIN G [Suspect]
     Active Substance: HUMAN IMMUNOGLOBULIN G
     Dosage: 10 GRAM, 1/WEEK
  5. HUMAN IMMUNOGLOBULIN G [Suspect]
     Active Substance: HUMAN IMMUNOGLOBULIN G
     Dosage: 10 GRAM, 2/WEEK
  6. HUMAN IMMUNOGLOBULIN G [Suspect]
     Active Substance: HUMAN IMMUNOGLOBULIN G
     Dosage: 5 GRAM, 2/WEEK
  7. HUMAN IMMUNOGLOBULIN G [Suspect]
     Active Substance: HUMAN IMMUNOGLOBULIN G
     Dosage: 6 GRAM, 2/WEEK
  8. ACETAMINOPHEN [Concomitant]
     Active Substance: ACETAMINOPHEN
  9. DRISDOL [Concomitant]
     Active Substance: ERGOCALCIFEROL
  10. ZYRTEC [Concomitant]
     Active Substance: CETIRIZINE HYDROCHLORIDE
  11. MELOXICAM [Concomitant]
     Active Substance: MELOXICAM
  12. FLONASE [Concomitant]
     Active Substance: FLUTICASONE PROPIONATE
  13. PEPCID [Concomitant]
     Active Substance: FAMOTIDINE
  14. ZOLOFT [Concomitant]
     Active Substance: SERTRALINE HYDROCHLORIDE
  15. MUCINEX D [Concomitant]
     Active Substance: GUAIFENESIN\PSEUDOEPHEDRINE HYDROCHLORIDE
  16. NEXIUM [Concomitant]
     Active Substance: ESOMEPRAZOLE MAGNESIUM
  17. LIPITOR [Concomitant]
     Active Substance: ATORVASTATIN CALCIUM
  18. PROPRANOLOL [Concomitant]
     Active Substance: PROPRANOLOL HYDROCHLORIDE
  19. LIDOCAINE [Concomitant]
     Active Substance: LIDOCAINE
  20. CONCERTA [Concomitant]
     Active Substance: METHYLPHENIDATE HYDROCHLORIDE
  21. LEVOFLOXACIN [Concomitant]
     Active Substance: LEVOFLOXACIN
  22. METFORMIN HYDROCHLORIDE [Concomitant]
     Active Substance: METFORMIN HYDROCHLORIDE
  23. TOPAMAX [Concomitant]
     Active Substance: TOPIRAMATE
  24. DIPHENHYDRAMINE HYDROCHLORIDE [Concomitant]
     Active Substance: DIPHENHYDRAMINE HYDROCHLORIDE
  25. ESTRADIOL [Concomitant]
     Active Substance: ESTRADIOL
  26. AIMOVIG [Concomitant]
     Active Substance: ERENUMAB-AOOE
  27. CYCLOBENZAPRINE HYDROCHLORIDE [Concomitant]
     Active Substance: CYCLOBENZAPRINE HYDROCHLORIDE
  28. DIPHENHYDRAMINE [Concomitant]
     Active Substance: DIPHENHYDRAMINE
  29. EPINEPHRINE [Concomitant]
     Active Substance: EPINEPHRINE
  30. AZITHROMYCIN [Concomitant]
     Active Substance: AZITHROMYCIN
  31. BUPROPION HYDROCHLORIDE [Concomitant]
     Active Substance: BUPROPION HYDROCHLORIDE
  32. ZOMIG [Concomitant]
     Active Substance: ZOLMITRIPTAN
  33. PREDNISONE [Concomitant]
     Active Substance: PREDNISONE
  34. Lmx [Concomitant]
  35. BUPROPION [Concomitant]
     Active Substance: BUPROPION
  36. FLONASE SENSIMIST ALLERGY RELIEF [Concomitant]
     Active Substance: FLUTICASONE FUROATE

REACTIONS (20)
  - Pneumonia bacterial [Not Recovered/Not Resolved]
  - Pneumonia [Unknown]
  - Cataract [Unknown]
  - Cerebrovascular accident [Unknown]
  - Bronchitis [Unknown]
  - Streptococcal infection [Unknown]
  - Nasopharyngitis [Unknown]
  - Gastrointestinal disorder [Unknown]
  - COVID-19 [Unknown]
  - Product dose omission issue [Unknown]
  - Infusion site vesicles [Unknown]
  - Injection site bruising [Unknown]
  - Dermatitis contact [Unknown]
  - Sinusitis [Recovered/Resolved]
  - Infusion site haemorrhage [Unknown]
  - Influenza [Recovering/Resolving]
  - Vertigo [Unknown]
  - Blood pressure increased [Unknown]
  - Fatigue [Unknown]
  - Headache [Unknown]

NARRATIVE: CASE EVENT DATE: 20221216
